FAERS Safety Report 11051969 (Version 2)
Quarter: 2015Q2

REPORT INFORMATION
  Report Type: Report from Study
  Country: FI (occurrence: FI)
  Receive Date: 20150421
  Receipt Date: 20150424
  Transmission Date: 20150821
  Serious: Yes (Hospitalization)
  Sender: FDA-Public Use
  Company Number: FI-ABBVIE-14P-055-1190057-00

PATIENT
  Age: 71 Year
  Sex: Female

DRUGS (1)
  1. DUODOPA [Suspect]
     Active Substance: CARBIDOPA\LEVODOPA
     Indication: PRODUCT USED FOR UNKNOWN INDICATION
     Dosage: 16H TREATMENT: 3.2 ML/H, IN THE AFTERNOON CHANGED TO 3.5 ML/H; ED 2 ML
     Route: 050
     Dates: start: 201310, end: 2015

REACTIONS (6)
  - Anxiety [Unknown]
  - Stress [Unknown]
  - Nightmare [Unknown]
  - Depression [Unknown]
  - Mental disorder [Unknown]
  - Insomnia [Unknown]

NARRATIVE: CASE EVENT DATE: 201310
